FAERS Safety Report 9388015 (Version 1)
Quarter: 2013Q3

REPORT INFORMATION
  Report Type: Spontaneous
  Country: US (occurrence: None)
  Receive Date: 20130701
  Receipt Date: 20130701
  Transmission Date: 20140515
  Serious: Yes (Other)
  Sender: FDA-Public Use
  Company Number: ACO_36862_2013

PATIENT
  Age: 65 Year
  Sex: Female

DRUGS (2)
  1. REBIF (INTERFERON BETA-1A) [Suspect]
     Indication: RELAPSING-REMITTING MULTIPLE SCLEROSIS
     Dosage: THREE TIMES WEEKLY,
     Route: 058
     Dates: start: 20110926
  2. AMPYRA (DALFAMPRIDINE) TABLET, 10MG [Suspect]
     Indication: GAIT DISTURBANCE

REACTIONS (4)
  - Convulsion [None]
  - Influenza like illness [None]
  - Vomiting [None]
  - Loss of consciousness [None]
